FAERS Safety Report 7064101-4 (Version None)
Quarter: 2010Q4

REPORT INFORMATION
  Report Type: 
  Country: None (occurrence: None)
  Receive Date: 20101027
  Receipt Date: 20101014
  Transmission Date: 20110411
  Serious: Yes (Hospitalization, Disabling, Other)
  Sender: FDA-Public Use
  Company Number: US-ELI_LILLY_AND_COMPANY-US201010003875

PATIENT
  Sex: Male

DRUGS (4)
  1. HUMALOG [Suspect]
     Indication: DIABETES MELLITUS
     Dosage: UNK, AS NEEDED
  2. HUMALOG [Suspect]
  3. HUMALOG [Suspect]
     Dosage: UNK, AS NEEDED
  4. LANTUS [Concomitant]

REACTIONS (7)
  - BLOOD GLUCOSE INCREASED [None]
  - CARDIAC DISORDER [None]
  - CORONARY ARTERY STENOSIS [None]
  - DRUG DOSE OMISSION [None]
  - INTERVERTEBRAL DISC PROTRUSION [None]
  - PARALYSIS [None]
  - SPINAL CORD COMPRESSION [None]
